FAERS Safety Report 18014508 (Version 1)
Quarter: 2020Q3

REPORT INFORMATION
  Report Type: Spontaneous
  Country: US (occurrence: US)
  Receive Date: 20200713
  Receipt Date: 20200713
  Transmission Date: 20201103
  Serious: No
  Sender: FDA-Public Use
  Company Number: NVSC2020US194744

PATIENT
  Age: 46 Year
  Sex: Female

DRUGS (2)
  1. KISQALI FEMARA CO?PACK [Suspect]
     Active Substance: LETROZOLE\RIBOCICLIB
     Indication: BREAST CANCER FEMALE
     Dosage: KISQALI 600 MG, QD ON DAYS 1?21
     Route: 048
  2. KISQALI FEMARA CO?PACK [Suspect]
     Active Substance: LETROZOLE\RIBOCICLIB
     Dosage: FEMARA 2.5 MG
     Route: 048

REACTIONS (3)
  - Back pain [Recovered/Resolved with Sequelae]
  - Hot flush [Recovered/Resolved with Sequelae]
  - Fatigue [Recovered/Resolved with Sequelae]
